FAERS Safety Report 16485831 (Version 2)
Quarter: 2019Q3

REPORT INFORMATION
  Report Type: Report from Study
  Country: US (occurrence: US)
  Receive Date: 20190627
  Receipt Date: 20190815
  Transmission Date: 20191004
  Serious: Yes (Death, Hospitalization, Other)
  Sender: FDA-Public Use
  Company Number: US-TAIHO ONCOLOGY  INC-EU-2019-02084

PATIENT
  Age: 64 Year
  Sex: Female
  Weight: 42.68 kg

DRUGS (22)
  1. ACETAMINOPHEN. [Concomitant]
     Active Substance: ACETAMINOPHEN
     Indication: PAIN
     Route: 048
  2. AUGMENTIN [Concomitant]
     Active Substance: AMOXICILLIN\CLAVULANATE POTASSIUM
     Dosage: 875 MG- 125 MG
     Route: 048
  3. VITAMIN B12 [Concomitant]
     Active Substance: CYANOCOBALAMIN
     Route: 048
  4. ACIDOPHILUS [Concomitant]
     Active Substance: LACTOBACILLUS ACIDOPHILUS
     Route: 048
  5. POTASSIUM [Concomitant]
     Active Substance: POTASSIUM
     Dosage: NI
  6. LONSURF [Suspect]
     Active Substance: TIPIRACIL HYDROCHLORIDE\TRIFLURIDINE
     Indication: RECTAL CANCER
     Dosage: ONE 15MG TAB AND TWO 20MG TABS.  DAY 1-5 AND DAY 8-12 OF 28 DAY CYCLE.?THERAPY ON HOLD ON 30/JAN/201
     Route: 048
     Dates: start: 20181217
  7. ZOFRAN [Concomitant]
     Active Substance: ONDANSETRON HYDROCHLORIDE
     Indication: NAUSEA
     Route: 048
  8. POTASSIUM CHLORIDE. [Concomitant]
     Active Substance: POTASSIUM CHLORIDE
     Dosage: ER TAB
     Route: 048
  9. DRONABINOL. [Concomitant]
     Active Substance: DRONABINOL
     Route: 048
  10. AMOXICILLIN/CLAVULANATE [Concomitant]
     Active Substance: AMOXICILLIN\CLAVULANATE POTASSIUM
  11. GABAPENTIN. [Concomitant]
     Active Substance: GABAPENTIN
  12. INVANZ [Concomitant]
     Active Substance: ERTAPENEM SODIUM
     Dosage: 1 GRAM RECON SOLN
  13. FERROUS SULFATE. [Concomitant]
     Active Substance: FERROUS SULFATE
     Dosage: NI
  14. OXYCODONE [Concomitant]
     Active Substance: OXYCODONE
     Indication: PAIN
     Route: 048
  15. DURAGESIC [Concomitant]
     Active Substance: FENTANYL
     Dosage: 75 MCG/HR PATCH 72 HOUR 1 PATCH
     Route: 062
  16. IRON - VITAMIN C [Concomitant]
     Dosage: DELAYED RELEASE?65 MG IRON-125 MG
     Route: 048
  17. VITAMIN C [Concomitant]
     Active Substance: ASCORBIC ACID
     Dosage: NI
  18. DURAGESIC [Concomitant]
     Active Substance: FENTANYL
     Dosage: 25 MCG/HR PATCH 72 HOUR 1 PATCH
     Route: 062
  19. LEVOFLOXACIN. [Concomitant]
     Active Substance: LEVOFLOXACIN
     Route: 048
  20. DURAGESIC [Concomitant]
     Active Substance: FENTANYL
     Dosage: 50 MCG/HR PATCH 72 HOUR 1 PATCH
     Route: 062
  21. MARINOL [Concomitant]
     Active Substance: DRONABINOL
     Dosage: ADMINISTER BEFORE LUNCH AND EVENING MEAL/ DINNER
     Route: 048
  22. VITAMIN D [Concomitant]
     Active Substance: VITAMIN D NOS
     Route: 048

REACTIONS (20)
  - Leukopenia [Unknown]
  - Vaginal discharge [Unknown]
  - Disease progression [Unknown]
  - Death [Fatal]
  - Anal fistula [Unknown]
  - Weight decreased [Unknown]
  - Sinus disorder [Unknown]
  - Leukocytosis [Unknown]
  - Nausea [Unknown]
  - Iron deficiency anaemia [Unknown]
  - Acute kidney injury [Unknown]
  - Normocytic anaemia [Unknown]
  - Facial wasting [Unknown]
  - Asthenia [Unknown]
  - Vaginal haemorrhage [Unknown]
  - Tumour necrosis [Unknown]
  - Decreased appetite [Unknown]
  - Escherichia urinary tract infection [Recovered/Resolved]
  - Hydronephrosis [Unknown]
  - Stomal hernia [Unknown]

NARRATIVE: CASE EVENT DATE: 2019
